FAERS Safety Report 6872205-1 (Version None)
Quarter: 2010Q3

REPORT INFORMATION
  Report Type: 
  Country: None (occurrence: None)
  Receive Date: 20100723
  Receipt Date: 20100721
  Transmission Date: 20110219
  Serious: Yes (Other)
  Sender: FDA-Public Use
  Company Number: IL-ALLERGAN-1008688US

PATIENT
  Age: 33 Year
  Sex: Female

DRUGS (1)
  1. BOTOX [Suspect]
     Indication: SKIN WRINKLING
     Dosage: 20 UNITS, SINGLE
     Dates: start: 20100621, end: 20100621

REACTIONS (4)
  - ASTHENIA [None]
  - CYANOSIS [None]
  - PARAESTHESIA [None]
  - SWOLLEN TONGUE [None]
